FAERS Safety Report 14879197 (Version 1)
Quarter: 2018Q2

REPORT INFORMATION
  Report Type: Spontaneous
  Country: US (occurrence: US)
  Receive Date: 20180511
  Receipt Date: 20180511
  Transmission Date: 20180711
  Serious: Yes (Hospitalization)
  Sender: FDA-Public Use
  Company Number: PHEH2018US016988

PATIENT
  Age: 50 Year
  Sex: Female

DRUGS (2)
  1. GILENYA [Suspect]
     Active Substance: FINGOLIMOD HYDROCHLORIDE
     Indication: PRODUCT USED FOR UNKNOWN INDICATION
     Route: 065
  2. AUBAGIO [Suspect]
     Active Substance: TERIFLUNOMIDE
     Indication: MULTIPLE SCLEROSIS
     Dosage: (BY MOUTH)
     Route: 065
     Dates: start: 20171229

REACTIONS (4)
  - Influenza [Unknown]
  - Fungal skin infection [Recovered/Resolved]
  - Central nervous system lesion [Unknown]
  - Confusional state [Unknown]

NARRATIVE: CASE EVENT DATE: 201801
